FAERS Safety Report 22536171 (Version 1)
Quarter: 2023Q2

REPORT INFORMATION
  Report Type: Report from Study
  Country: US (occurrence: None)
  Receive Date: 20230608
  Receipt Date: 20230608
  Transmission Date: 20230722
  Serious: Yes (Other)
  Sender: FDA-Public Use
  Company Number: 2023A126597

PATIENT
  Sex: Female

DRUGS (2)
  1. TAGRISSO [Suspect]
     Active Substance: OSIMERTINIB
     Indication: Lung carcinoma cell type unspecified stage 0
     Route: 048
  2. PEPCID [Concomitant]
     Active Substance: FAMOTIDINE

REACTIONS (7)
  - Deep vein thrombosis [Unknown]
  - Hypotension [Not Recovered/Not Resolved]
  - Diarrhoea [Not Recovered/Not Resolved]
  - Head discomfort [Unknown]
  - Dizziness [Unknown]
  - Weight decreased [Unknown]
  - Product dose omission issue [Unknown]
